FAERS Safety Report 15518044 (Version 2)
Quarter: 2019Q1

REPORT INFORMATION
  Report Type: Report from Study
  Country: BR (occurrence: BR)
  Receive Date: 20181017
  Receipt Date: 20190110
  Transmission Date: 20190417
  Serious: Yes (Death, Hospitalization)
  Sender: FDA-Public Use
  Company Number: PHHY2018BR084923

PATIENT
  Sex: Male
  Weight: 82 kg

DRUGS (1)
  1. EXELON PATCH [Suspect]
     Active Substance: RIVASTIGMINE
     Indication: DEMENTIA ALZHEIMER^S TYPE
     Dosage: 4.6 MG, QD PATCH 5 (CM2)
     Route: 062

REACTIONS (7)
  - Pneumonia [Fatal]
  - Application site reaction [Not Recovered/Not Resolved]
  - Anaemia [Unknown]
  - Urinary bladder haemorrhage [Unknown]
  - Application site pruritus [Unknown]
  - Neoplasm progression [Fatal]
  - Respiratory disorder [Fatal]
